FAERS Safety Report 4392750-0 (Version None)
Quarter: 2004Q3

REPORT INFORMATION
  Report Type: 
  Country: None (occurrence: None)
  Receive Date: 20040707
  Receipt Date: 20040628
  Transmission Date: 20050211
  Serious: Yes (Life-Threatening, Hospitalization)
  Sender: FDA-Public Use
  Company Number: 2004UW11707

PATIENT
  Age: 47 Year
  Sex: Male

DRUGS (11)
  1. CRESTOR [Suspect]
     Indication: BLOOD CHOLESTEROL INCREASED
     Dosage: 10 MG QD PO
     Route: 048
  2. ZOLOFT [Concomitant]
  3. METFORMIN [Concomitant]
  4. OXYCONTIN [Concomitant]
  5. AMBIEN [Concomitant]
  6. TOPROL-XL [Concomitant]
  7. SOMA [Concomitant]
  8. NITROTAB [Concomitant]
  9. LOTREL [Concomitant]
  10. AMARYL [Concomitant]
  11. NEURONTIN [Concomitant]

REACTIONS (14)
  - ASTERIXIS [None]
  - BLADDER OBSTRUCTION [None]
  - BLOOD PRESSURE DIASTOLIC DECREASED [None]
  - CONFUSIONAL STATE [None]
  - CONSTIPATION [None]
  - DEHYDRATION [None]
  - DISORIENTATION [None]
  - LETHARGY [None]
  - MYOCLONUS [None]
  - NEUROGENIC BLADDER [None]
  - OEDEMA PERIPHERAL [None]
  - RENAL FAILURE ACUTE [None]
  - RHABDOMYOLYSIS [None]
  - SYNCOPE [None]
